FAERS Safety Report 9880507 (Version 1)
Quarter: 2014Q1

REPORT INFORMATION
  Report Type: Spontaneous
  Country: FR (occurrence: FR)
  Receive Date: 20140207
  Receipt Date: 20140207
  Transmission Date: 20141002
  Serious: Yes (Hospitalization)
  Sender: FDA-Public Use
  Company Number: FR-JNJFOC-20140201466

PATIENT
  Age: 28 Year
  Sex: Female

DRUGS (4)
  1. XARELTO [Suspect]
     Indication: EMBOLISM VENOUS
     Dosage: CUMULATIVE DOSE TO THE FIRST REACTION WAS 120 MG
     Route: 048
     Dates: start: 20131219, end: 20131222
  2. XARELTO [Suspect]
     Indication: EMBOLISM VENOUS
     Route: 048
  3. XARELTO [Suspect]
     Indication: DEEP VEIN THROMBOSIS
     Dosage: CUMULATIVE DOSE TO THE FIRST REACTION WAS 120 MG
     Route: 048
     Dates: start: 20131219, end: 20131222
  4. XARELTO [Suspect]
     Indication: DEEP VEIN THROMBOSIS
     Route: 048

REACTIONS (1)
  - Urticaria [Recovered/Resolved]
